FAERS Safety Report 9553947 (Version 2)
Quarter: 2014Q3

REPORT INFORMATION
  Report Type: Report from Study
  Country: US (occurrence: US)
  Receive Date: 20130925
  Receipt Date: 20140704
  Transmission Date: 20150326
  Serious: Yes (Other)
  Sender: FDA-Public Use
  Company Number: US-ALEXION PHARMACEUTICALS INC.-A201302389

PATIENT

DRUGS (1)
  1. SOLIRIS [Suspect]
     Active Substance: ECULIZUMAB
     Indication: HAEMOLYTIC URAEMIC SYNDROME
     Dosage: UNK
     Route: 042
     Dates: end: 20130917

REACTIONS (6)
  - Malaise [Unknown]
  - Thrombocytopenia [Unknown]
  - Memory impairment [Unknown]
  - Drug dose omission [Unknown]
  - Haemodialysis [Unknown]
  - Fatigue [Unknown]

NARRATIVE: CASE EVENT DATE: 20130917
